FAERS Safety Report 14376727 (Version 1)
Quarter: 2018Q1

REPORT INFORMATION
  Report Type: Spontaneous
  Country: US (occurrence: US)
  Receive Date: 20180111
  Receipt Date: 20180111
  Transmission Date: 20180509
  Serious: No
  Sender: FDA-Public Use
  Company Number: US-DRREDDYS-USA/USA/17/0092735

PATIENT

DRUGS (1)
  1. NICOTINE. [Suspect]
     Active Substance: NICOTINE
     Indication: PRODUCT USED FOR UNKNOWN INDICATION
     Route: 062

REACTIONS (5)
  - Application site pruritus [Unknown]
  - Application site pain [Unknown]
  - Application site irritation [Unknown]
  - Application site erythema [Unknown]
  - Application site discolouration [Unknown]

NARRATIVE: CASE EVENT DATE: 20170808
